FAERS Safety Report 4421253-X (Version None)
Quarter: 2004Q3

REPORT INFORMATION
  Report Type: 
  Country: None (occurrence: None)
  Receive Date: 20040804
  Receipt Date: 20040726
  Transmission Date: 20050211
  Serious: Yes (Hospitalization)
  Sender: FDA-Public Use
  Company Number: 2003163722PE

PATIENT
  Age: 70 Year
  Sex: Female
  Weight: 47.5 kg

DRUGS (2)
  1. EXEMESTANE [Suspect]
     Indication: BREAST CANCER
     Dosage: 25 MG, QD, ORAL
     Route: 048
     Dates: start: 20010521, end: 20020331
  2. CEFTRIAXONE [Concomitant]

REACTIONS (6)
  - CRACKLES LUNG [None]
  - INFECTION [None]
  - LUNG DISORDER [None]
  - LUNG INFILTRATION [None]
  - PULMONARY EMBOLISM [None]
  - TACHYPNOEA [None]
